FAERS Safety Report 6675315-7 (Version None)
Quarter: 2010Q2

REPORT INFORMATION
  Report Type: 
  Country: None (occurrence: None)
  Receive Date: 20100409
  Receipt Date: 20100211
  Transmission Date: 20101027
  Serious: No
  Sender: FDA-Public Use
  Company Number: A0842480A

PATIENT
  Age: 49 Year
  Sex: Female
  Weight: 79.5 kg

DRUGS (2)
  1. TYKERB [Suspect]
     Dosage: 1000MG PER DAY
     Route: 048
     Dates: start: 20090718
  2. HERCEPTIN [Suspect]
     Route: 065

REACTIONS (2)
  - DIARRHOEA [None]
  - SINUSITIS [None]
